FAERS Safety Report 7923776 (Version 7)
Quarter: 2012Q4

REPORT INFORMATION
  Report Type: Report from Study
  Country: US (occurrence: US)
  Receive Date: 20110502
  Receipt Date: 20121011
  Transmission Date: 20130627
  Serious: Yes (Hospitalization)
  Sender: FDA-Public Use
  Company Number: US-BIOGENIDEC-2011BI015186

PATIENT
  Age: 63 Year
  Sex: Female
  Weight: 62 kg

DRUGS (17)
  1. TYSABRI [Suspect]
     Indication: MULTIPLE SCLEROSIS
     Route: 042
     Dates: start: 20070613
  2. ADVAIR [Concomitant]
     Route: 055
  3. ADVAIR [Concomitant]
     Route: 055
  4. ADVIL [Concomitant]
  5. BONIVA [Concomitant]
     Indication: OSTEOPOROSIS
     Dates: start: 20090716
  6. CALTRATE [Concomitant]
     Route: 048
  7. CITRACAL [Concomitant]
  8. CITRUCEL [Concomitant]
     Indication: CONSTIPATION
     Dates: start: 20090716
  9. COLACE [Concomitant]
     Route: 048
  10. CRANBERRY [Concomitant]
     Route: 048
  11. FEXOFENADINE [Concomitant]
  12. MULTIPLE VITAMIN [Concomitant]
     Route: 048
  13. NEXIUM [Concomitant]
     Indication: GASTROOESOPHAGEAL REFLUX DISEASE
     Dates: start: 20090716
  14. SANCTURA [Concomitant]
     Route: 048
  15. SINGULAIR [Concomitant]
     Route: 048
  16. TROSPIUM [Concomitant]
     Indication: NEUROGENIC BLADDER
     Dates: start: 20101011
  17. ZANAFLEX [Concomitant]
     Indication: MUSCLE SPASTICITY
     Route: 048
     Dates: start: 20070312

REACTIONS (1)
  - Adenocarcinoma [Recovered/Resolved]
